FAERS Safety Report 4424265-5 (Version None)
Quarter: 2004Q3

REPORT INFORMATION
  Report Type: 
  Country: None (occurrence: None)
  Receive Date: 20040810
  Receipt Date: 20040810
  Transmission Date: 20050211
  Serious: Yes (Other)
  Sender: FDA-Public Use
  Company Number: None

PATIENT
  Age: 54 Year
  Sex: Male

DRUGS (6)
  1. ENBREL [Suspect]
     Indication: PSORIASIS
     Dosage: 2 X 25 MG SUB Q / WK
     Route: 050
     Dates: start: 20030723
  2. ENBREL [Suspect]
     Indication: PSORIATIC ARTHROPATHY
     Dosage: 2 X 25 MG SUB Q / WK
     Route: 050
     Dates: start: 20030723
  3. METHOTREXATE [Suspect]
     Indication: PSORIASIS
     Dosage: 3 X 2.5 G ONCE/WK PO
     Route: 048
     Dates: start: 20030723
  4. METHOTREXATE [Suspect]
     Indication: PSORIATIC ARTHROPATHY
     Dosage: 3 X 2.5 G ONCE/WK PO
     Route: 048
     Dates: start: 20030723
  5. LOBETASOL OINTMENT [Concomitant]
  6. FOLIC ACID [Concomitant]

REACTIONS (2)
  - FATIGUE [None]
  - SKIN PAPILLOMA [None]
